FAERS Safety Report 17482500 (Version 2)
Quarter: 2020Q1

REPORT INFORMATION
  Report Type: Report from Study
  Country: MX (occurrence: MX)
  Receive Date: 20200302
  Receipt Date: 20200310
  Transmission Date: 20200409
  Serious: Yes (Hospitalization, Other)
  Sender: FDA-Public Use
  Company Number: NVSC2020MX012467

PATIENT
  Sex: Male
  Weight: 75 kg

DRUGS (11)
  1. ENTRESTO [Suspect]
     Active Substance: SACUBITRIL\VALSARTAN
     Indication: CARDIAC FAILURE
     Dosage: 50 MG, BID (IN THE MORNING AND IN THE AFTER NOON)
     Route: 048
  2. ENTRESTO [Suspect]
     Active Substance: SACUBITRIL\VALSARTAN
     Dosage: 0.5 DF (100 MG), BID (IN THE MORNING AND AT NIGHT)
     Route: 048
  3. AMIODARONE [Concomitant]
     Active Substance: AMIODARONE
     Indication: ARRHYTHMIA
     Dosage: 1 DF (200 MG) ON MONDAYS,WEDNESSDAYS, FRIDAYS AND SUNDAYS
     Route: 048
  4. FUROSEMIDE. [Concomitant]
     Active Substance: FUROSEMIDE
     Indication: RENAL DISORDER
     Dosage: 2 DF, QD
     Route: 048
     Dates: end: 20200225
  5. PANTOPRAZOLE [Concomitant]
     Active Substance: PANTOPRAZOLE
     Indication: ABDOMINAL DISCOMFORT
     Dosage: 1 DF, OCCASIONALLY (WHEN HER STOMACH GETS IRRITATED)
     Route: 065
  6. MICCIL [Concomitant]
     Indication: RENAL DISORDER
     Dosage: 1 DF, QD
     Route: 048
     Dates: end: 20200224
  7. TEMERIT [Concomitant]
     Active Substance: NEBIVOLOL
     Indication: PRODUCT USED FOR UNKNOWN INDICATION
     Dosage: 0.5 DF (5 MG), EVERY 24 HRS
     Route: 048
  8. IDAPTAN MR [Concomitant]
     Indication: PRODUCT USED FOR UNKNOWN INDICATION
     Dosage: 1 DF (35 MG),EVERY 12 HRS
     Route: 048
  9. ALLOPURINOL. [Concomitant]
     Active Substance: ALLOPURINOL
     Indication: BLOOD URIC ACID
     Dosage: 1 DF (300 MG), QD
     Route: 048
  10. RIVOTRIL [Concomitant]
     Active Substance: CLONAZEPAM
     Indication: ANXIOLYTIC THERAPY
     Dosage: 3 DRP, AT NIGHT
     Route: 048
  11. SERTRALINE [Concomitant]
     Active Substance: SERTRALINE HYDROCHLORIDE
     Indication: ANXIETY
     Dosage: 1 DF, AT NIGHT
     Route: 065

REACTIONS (5)
  - Pneumonia [Recovered/Resolved with Sequelae]
  - Renal disorder [Recovered/Resolved with Sequelae]
  - Product prescribing error [Unknown]
  - Respiratory disorder [Recovered/Resolved with Sequelae]
  - Wrong technique in product usage process [Unknown]
